FAERS Safety Report 22842357 (Version 2)
Quarter: 2023Q4

REPORT INFORMATION
  Report Type: Other
  Country: CA (occurrence: None)
  Receive Date: 20230821
  Receipt Date: 20231027
  Transmission Date: 20240110
  Serious: Yes (Hospitalization)
  Sender: FDA-Public Use
  Company Number: CA-ROCHE-3388467

PATIENT
  Sex: Male

DRUGS (12)
  1. ACTEMRA [Suspect]
     Active Substance: TOCILIZUMAB
     Indication: Kidney transplant rejection
     Dosage: DRUG DOSE FIRST ADMINISTERED IS 800 MG MILLIGRAM(S)
     Route: 042
     Dates: start: 20190508
  2. TACROLIMUS [Concomitant]
     Active Substance: TACROLIMUS
  3. ARIPIPRAZOLE [Concomitant]
     Active Substance: ARIPIPRAZOLE
  4. ATORVASTATIN [Concomitant]
     Active Substance: ATORVASTATIN
  5. MYCOPHENOLIC ACID [Concomitant]
     Active Substance: MYCOPHENOLIC ACID
  6. PANTOPRAZOLE [Concomitant]
     Active Substance: PANTOPRAZOLE
  7. PERINDOPRIL [Concomitant]
     Active Substance: PERINDOPRIL
  8. PREDNISONE [Concomitant]
     Active Substance: PREDNISONE
  9. ROCALTROL [Concomitant]
     Active Substance: CALCITRIOL
  10. SODIUM BICARBONATE [Concomitant]
     Active Substance: SODIUM BICARBONATE
  11. SULFATRIM [Concomitant]
     Active Substance: SULFAMETHOXAZOLE\TRIMETHOPRIM
  12. TRINTELLIX [Concomitant]
     Active Substance: VORTIOXETINE HYDROBROMIDE

REACTIONS (1)
  - Urethral disorder [Unknown]

NARRATIVE: CASE EVENT DATE: 20230101
